FAERS Safety Report 16994025 (Version 1)
Quarter: 2019Q4

REPORT INFORMATION
  Report Type: Spontaneous
  Country: SI (occurrence: SI)
  Receive Date: 20191105
  Receipt Date: 20191105
  Transmission Date: 20200122
  Serious: Yes (Other)
  Sender: FDA-Public Use
  Company Number: SI-JNJFOC-20191040180

PATIENT
  Age: 6 Decade
  Sex: Female
  Weight: 57 kg

DRUGS (3)
  1. DUROGESIC [Suspect]
     Active Substance: FENTANYL
     Indication: PAIN
     Route: 062
  2. LORSILAN [Suspect]
     Active Substance: LORAZEPAM
     Indication: PRODUCT USED FOR UNKNOWN INDICATION
     Route: 065
  3. TRAMAL [Suspect]
     Active Substance: TRAMADOL
     Indication: PRODUCT USED FOR UNKNOWN INDICATION
     Route: 065

REACTIONS (21)
  - Road traffic accident [Unknown]
  - Heart rate increased [Unknown]
  - Hypophagia [Unknown]
  - Hyperhidrosis [Unknown]
  - Fluid retention [Not Recovered/Not Resolved]
  - Pain [Unknown]
  - Muscle tightness [Not Recovered/Not Resolved]
  - Suicide attempt [Unknown]
  - Dependence [Unknown]
  - Gait inability [Unknown]
  - Lung disorder [Unknown]
  - Suicidal ideation [Unknown]
  - Blood glucose decreased [Unknown]
  - Insomnia [Unknown]
  - Pancreatic disorder [Unknown]
  - Cataract [Unknown]
  - Coma [Unknown]
  - Lymphadenopathy [Unknown]
  - Irritability [Unknown]
  - Ulcer [Unknown]
  - Frequent bowel movements [Unknown]

NARRATIVE: CASE EVENT DATE: 2013
